FAERS Safety Report 9482701 (Version 1)
Quarter: 2013Q3

REPORT INFORMATION
  Report Type: Spontaneous
  Country: JP (occurrence: JP)
  Receive Date: 20130828
  Receipt Date: 20130828
  Transmission Date: 20140515
  Serious: Yes (Hospitalization)
  Sender: FDA-Public Use
  Company Number: JP-JNJFOC-20130813346

PATIENT
  Age: 70 Year
  Sex: Male

DRUGS (5)
  1. RISPERDAL [Suspect]
     Indication: SUICIDAL IDEATION
     Route: 048
  2. CHLORPROMAZINE HYDROCHLORIDE [Suspect]
     Indication: SUICIDAL IDEATION
     Route: 065
  3. PROMETHAZINE HYDROCHLORIDE [Suspect]
     Indication: SUICIDAL IDEATION
     Route: 065
  4. PHENOBARBITAL [Suspect]
     Indication: SUICIDAL IDEATION
     Route: 065
  5. NITRAZEPAM [Suspect]
     Indication: SUICIDAL IDEATION
     Route: 065

REACTIONS (1)
  - Intentional overdose [Recovered/Resolved]
